FAERS Safety Report 7689753-7 (Version None)
Quarter: 2011Q3

REPORT INFORMATION
  Report Type: 
  Country: None (occurrence: None)
  Receive Date: 20110817
  Receipt Date: 20110810
  Transmission Date: 20111222
  Serious: No
  Sender: FDA-Public Use
  Company Number: US-RB-025764-11

PATIENT
  Age: 58 Year
  Sex: Female

DRUGS (4)
  1. METHOTREXATE [Concomitant]
     Indication: MYOSITIS
     Dosage: DOSING INFORMATION UNKNOWN
     Route: 065
  2. SUBOXONE [Suspect]
     Indication: PAIN
     Dosage: SUBLINGUAL FILM
     Route: 060
     Dates: start: 20110501, end: 20110601
  3. PREDNISONE [Concomitant]
     Indication: MYOSITIS
     Dosage: DOSING INFORMATION UNKNOWN
     Route: 065
  4. SUBOXONE [Suspect]
     Indication: DRUG DEPENDENCE
     Route: 060
     Dates: start: 20110701, end: 20110801

REACTIONS (9)
  - OEDEMA PERIPHERAL [None]
  - ASTHENIA [None]
  - HYPOTENSION [None]
  - TOOTH INFECTION [None]
  - ERYTHEMA [None]
  - INCOHERENT [None]
  - CONFUSIONAL STATE [None]
  - VISION BLURRED [None]
  - RASH [None]
